FAERS Safety Report 5321074-X (Version None)
Quarter: 2007Q2

REPORT INFORMATION
  Report Type: 
  Country: None (occurrence: None)
  Receive Date: 20070504
  Receipt Date: 20070424
  Transmission Date: 20071010
  Serious: Yes (Hospitalization)
  Sender: FDA-Public Use
  Company Number: 310002M07USA

PATIENT
  Age: 39 Year
  Sex: Female
  Weight: 55.3388 kg

DRUGS (3)
  1. GONAL-F [Suspect]
     Indication: INFERTILITY
     Dosage: 1 IN 1 DAYS, SUBCUTANEOUS
     Route: 058
     Dates: start: 20070305, end: 20070316
  2. AVELOX [Suspect]
     Dosage: ORAL
     Route: 048
     Dates: start: 20070403
  3. CRINONE [Concomitant]

REACTIONS (11)
  - ABDOMINAL PAIN [None]
  - CHILLS [None]
  - DECREASED APPETITE [None]
  - HEPATOMEGALY [None]
  - HEPATOTOXICITY [None]
  - HYPERHIDROSIS [None]
  - LIVER FUNCTION TEST ABNORMAL [None]
  - LIVER TENDERNESS [None]
  - NAUSEA [None]
  - PYREXIA [None]
  - SINUSITIS [None]
